FAERS Safety Report 9053349 (Version 1)
Quarter: 2013Q1

REPORT INFORMATION
  Report Type: Spontaneous
  Country: NZ (occurrence: NZ)
  Receive Date: 20130207
  Receipt Date: 20130207
  Transmission Date: 20140127
  Serious: Yes (Hospitalization)
  Sender: FDA-Public Use
  Company Number: NZ-PFIZER INC-2012323741

PATIENT
  Sex: Female
  Weight: 94 kg

DRUGS (5)
  1. CHAMPIX [Suspect]
     Indication: SMOKING CESSATION THERAPY
     Dosage: 1 MG, 2X/DAY
     Route: 048
     Dates: start: 20120926, end: 20121006
  2. TEGRETOL [Concomitant]
     Indication: EPILEPSY
     Dosage: 400 MG, 2X/DAY
     Route: 048
  3. EPILIM [Concomitant]
     Indication: EPILEPSY
     Dosage: 500MG MANE, 1G NOCTE
     Route: 048
  4. BREVA [Concomitant]
  5. SALBUTAMOL SULFATE [Concomitant]

REACTIONS (3)
  - Heart rate irregular [Unknown]
  - Colitis [Unknown]
  - Malaise [Unknown]
